FAERS Safety Report 9308645 (Version 1)
Quarter: 2013Q2

REPORT INFORMATION
  Report Type: Report from Study
  Country: FR (occurrence: FR)
  Receive Date: 20130524
  Receipt Date: 20130524
  Transmission Date: 20140414
  Serious: Yes (Death, Life-Threatening, Hospitalization, Other)
  Sender: FDA-Public Use
  Company Number: FR-009507513-1205FRA00120

PATIENT
  Age: 45 Year
  Sex: Male
  Weight: 45 kg

DRUGS (9)
  1. RALTEGRAVIR POTASSIUM [Suspect]
     Indication: HIV INFECTION
     Dosage: 400 MG, BID
     Dates: start: 20101004, end: 20120524
  2. TRIFLUCAN [Concomitant]
     Indication: PROPHYLAXIS
     Dosage: 100 MG, QD
     Route: 048
  3. TRUVADA [Concomitant]
     Indication: HIV INFECTION
     Dosage: 1 UNK, QD
     Route: 048
     Dates: start: 20101004
  4. BACTRIM [Concomitant]
     Indication: PROPHYLAXIS
     Dosage: 1 DF, QD
     Dates: start: 20100914
  5. DAFALGAN [Concomitant]
     Indication: PAIN
     Dosage: 4 UNK, UNK
     Dates: start: 20100914
  6. XANAX [Concomitant]
     Dosage: 1 UNK, UNK
  7. FORTIMEL [Concomitant]
     Indication: DYSPHAGIA
     Dosage: 3 UNK, UNK
     Dates: start: 20100914
  8. KETODERM [Concomitant]
     Indication: SEBORRHOEIC DERMATITIS
     Dosage: 2 UNK, UNK
     Dates: start: 20100914
  9. TRIFLUCAN [Concomitant]
     Indication: OESOPHAGEAL CANDIDIASIS
     Dosage: 1 UNK, UNK
     Dates: start: 20101004, end: 20101014

REACTIONS (14)
  - Pharyngeal cancer [Fatal]
  - Oesophageal candidiasis [Recovered/Resolved]
  - General physical health deterioration [Fatal]
  - Weight decreased [Fatal]
  - Cough [Not Recovered/Not Resolved]
  - Nausea [Not Recovered/Not Resolved]
  - Pain [Not Recovered/Not Resolved]
  - Gastrostomy [Unknown]
  - Lung disorder [Fatal]
  - Asthenia [Fatal]
  - Fistula [Fatal]
  - Staphylococcal infection [Fatal]
  - Abscess neck [Fatal]
  - Deafness [Fatal]
